FAERS Safety Report 5148602-1 (Version None)
Quarter: 2006Q4

REPORT INFORMATION
  Report Type: 
  Country: None (occurrence: None)
  Receive Date: 20061107
  Receipt Date: 20061016
  Transmission Date: 20070319
  Serious: Yes (Other)
  Sender: FDA-Public Use
  Company Number: 2006ADE/CIPRO-025

PATIENT
  Age: 54 Year
  Sex: Female

DRUGS (2)
  1. CIPROFLOXACIN [Suspect]
     Indication: URINARY TRACT INFECTION
     Dosage: 500MG,         2DAYS, ORAL
     Route: 048
     Dates: start: 20060703, end: 20060704
  2. CIPROFLOXACIN [Suspect]
     Indication: URINARY TRACT INFECTION
     Dosage: 2.500MG, 1DAY, ORAL
     Route: 048
     Dates: start: 20060704, end: 20060704

REACTIONS (2)
  - HAEMOLYTIC ANAEMIA [None]
  - IMMUNE SYSTEM DISORDER [None]
